FAERS Safety Report 5672415-5 (Version None)
Quarter: 2008Q1

REPORT INFORMATION
  Report Type: 
  Country: None (occurrence: None)
  Receive Date: 20080318
  Receipt Date: 20080318
  Transmission Date: 20080703
  Serious: Yes (Other)
  Sender: FDA-Public Use
  Company Number: None

PATIENT
  Age: 48 Year
  Sex: Female
  Weight: 89.3586 kg

DRUGS (1)
  1. BUDEPRION XL 300 MG TEVA [Suspect]
     Indication: DEPRESSION
     Dosage: 300 MG 1 X PER DAY PO
     Route: 048
     Dates: start: 20080208, end: 20080309

REACTIONS (5)
  - ANGER [None]
  - DEPRESSION [None]
  - PARANOIA [None]
  - SUICIDAL IDEATION [None]
  - THERAPEUTIC RESPONSE UNEXPECTED WITH DRUG SUBSTITUTION [None]
